FAERS Safety Report 4678989-5 (Version None)
Quarter: 2005Q2

REPORT INFORMATION
  Report Type: 
  Country: None (occurrence: None)
  Receive Date: 20050525
  Receipt Date: 20050315
  Transmission Date: 20051028
  Serious: No
  Sender: FDA-Public Use
  Company Number: 213204

PATIENT
  Age: 48 Year
  Sex: Male

DRUGS (1)
  1. RAPTIVA [Suspect]
     Indication: PSORIASIS

REACTIONS (1)
  - BLOOD GLUCOSE INCREASED [None]
